FAERS Safety Report 6857629-0 (Version None)
Quarter: 2010Q3

REPORT INFORMATION
  Report Type: 
  Country: None (occurrence: None)
  Receive Date: 20100719
  Receipt Date: 20080322
  Transmission Date: 20110219
  Serious: Yes (Other)
  Sender: FDA-Public Use
  Company Number: US-PFIZER INC-2008008228

PATIENT
  Age: 73 Year
  Sex: Female
  Weight: 76.2 kg

DRUGS (2)
  1. CHANTIX [Suspect]
     Indication: NICOTINE DEPENDENCE
     Route: 048
     Dates: start: 20071109, end: 20071221
  2. CHANTIX [Suspect]
     Indication: PANCREATITIS

REACTIONS (2)
  - PANCREATITIS [None]
  - REFLUX GASTRITIS [None]
